FAERS Safety Report 7790464-8 (Version None)
Quarter: 2011Q3

REPORT INFORMATION
  Report Type: 
  Country: None (occurrence: None)
  Receive Date: 20110930
  Receipt Date: 20110915
  Transmission Date: 20111222
  Serious: Yes (Other)
  Sender: FDA-Public Use
  Company Number: TW-WATSON-2011-15396

PATIENT
  Age: 27 Year
  Sex: Female

DRUGS (4)
  1. ZOLPIDEM TARTRATE [Suspect]
     Indication: ANXIETY
     Dosage: 100 MG TO 200 MG DAILYX 2 YRS
     Route: 065
  2. ZOLPIDEM TARTRATE [Suspect]
     Indication: MOOD SWINGS
  3. ZOLPIDEM TARTRATE [Suspect]
     Indication: INSOMNIA
  4. METHYLPREDNISOLONE ACETATE [Suspect]
     Indication: ANKYLOSING SPONDYLITIS
     Dosage: 750 MG, DAILY
     Route: 042

REACTIONS (3)
  - WITHDRAWAL SYNDROME [None]
  - DRUG DEPENDENCE [None]
  - CATATONIA [None]
